FAERS Safety Report 4531186-6 (Version None)
Quarter: 2004Q4

REPORT INFORMATION
  Report Type: 
  Country: None (occurrence: None)
  Receive Date: 20041206
  Receipt Date: 20040831
  Transmission Date: 20050328
  Serious: No
  Sender: FDA-Public Use
  Company Number: USA040876988

PATIENT
  Age: 42 Year
  Sex: Female
  Weight: 66 kg

DRUGS (3)
  1. CYMBALTA [Suspect]
     Indication: DEPRESSION
     Dosage: 7.5 MG/1 DAY
     Dates: start: 20040828
  2. LEXAPRO [Concomitant]
  3. REMERON [Concomitant]

REACTIONS (5)
  - FATIGUE [None]
  - INSOMNIA [None]
  - NAUSEA [None]
  - SEDATION [None]
  - SOMNOLENCE [None]
